FAERS Safety Report 16541607 (Version 1)
Quarter: 2019Q3

REPORT INFORMATION
  Report Type: Spontaneous
  Country: US (occurrence: US)
  Receive Date: 20190708
  Receipt Date: 20190708
  Transmission Date: 20191004
  Serious: No
  Sender: FDA-Public Use
  Company Number: US-AVEDRO-AVE-2019-0186-AE

PATIENT
  Age: 22 Year
  Sex: Female

DRUGS (3)
  1. AVEDRO CROSS-LINKING PRODUCT(S), UNSPECIFIED [Suspect]
     Active Substance: RIBOFLAVIN 5^-PHOSPHATE SODIUM
     Indication: KERATOCONUS
     Route: 047
     Dates: start: 201904, end: 201904
  2. PAIN MEDICATION [Suspect]
     Active Substance: UNSPECIFIED INGREDIENT
     Indication: EYE PAIN
     Dates: start: 201904
  3. AVEDRO CROSS-LINKING PRODUCT(S), UNSPECIFIED [Suspect]
     Active Substance: RIBOFLAVIN 5^-PHOSPHATE SODIUM
     Route: 047
     Dates: start: 20190524, end: 20190524

REACTIONS (4)
  - Malaise [Unknown]
  - Eye pain [Unknown]
  - Eye irritation [Unknown]
  - Eye irritation [Unknown]

NARRATIVE: CASE EVENT DATE: 201904
